FAERS Safety Report 25208956 (Version 1)
Quarter: 2025Q2

REPORT INFORMATION
  Report Type: Spontaneous
  Country: US (occurrence: US)
  Receive Date: 20250417
  Receipt Date: 20250417
  Transmission Date: 20250717
  Serious: No
  Sender: BOEHRINGER INGELHEIM
  Company Number: US-Komodo Health-a23aa000006qb4rAAA

PATIENT
  Age: 76 Year
  Sex: Male

DRUGS (1)
  1. STIOLTO RESPIMAT [Suspect]
     Active Substance: OLODATEROL HYDROCHLORIDE\TIOTROPIUM BROMIDE MONOHYDRATE
     Indication: Lung disorder
     Dosage: EVERY DAY IN THE MORNING
     Dates: start: 202502, end: 202504

REACTIONS (3)
  - Chest pain [Recovered/Resolved]
  - Hypertension [Recovered/Resolved]
  - Dyschromatopsia [Recovered/Resolved]

NARRATIVE: CASE EVENT DATE: 20250101
